FAERS Safety Report 9720580 (Version 4)
Quarter: 2014Q1

REPORT INFORMATION
  Report Type: Spontaneous
  Country: US (occurrence: US)
  Receive Date: 20131129
  Receipt Date: 20140124
  Transmission Date: 20141002
  Serious: Yes (Other)
  Sender: FDA-Public Use
  Company Number: US-009507513-1311USA011680

PATIENT
  Age: 71 Year
  Sex: Male

DRUGS (6)
  1. JANUVIA [Suspect]
     Indication: DIABETES MELLITUS
     Dosage: 100 MG, QD
     Route: 048
     Dates: start: 20120326, end: 20131120
  2. GLIPIZIDE [Concomitant]
  3. CRESTOR [Concomitant]
  4. LISINOPRIL [Concomitant]
     Route: 048
  5. TAMSULOSIN HYDROCHLORIDE [Concomitant]
  6. METFORMIN [Concomitant]

REACTIONS (3)
  - Pancreatic carcinoma [Not Recovered/Not Resolved]
  - Aortic aneurysm repair [Unknown]
  - Pancreaticoduodenectomy [Unknown]
